FAERS Safety Report 5098519-6 (Version None)
Quarter: 2006Q3

REPORT INFORMATION
  Report Type: 
  Country: None (occurrence: None)
  Receive Date: 20060906
  Receipt Date: 20060213
  Transmission Date: 20061208
  Serious: Yes (Other)
  Sender: FDA-Public Use
  Company Number: US-GLAXOSMITHKLINE-A0593452A

PATIENT
  Age: 55 Year
  Sex: Male

DRUGS (4)
  1. REQUIP [Suspect]
     Indication: PARKINSON'S DISEASE
     Dosage: 4MG THREE TIMES PER DAY
     Route: 048
  2. REMICADE [Concomitant]
  3. XIFAXAN [Concomitant]
  4. COLAZAL [Concomitant]

REACTIONS (4)
  - DRUG INEFFECTIVE [None]
  - MOTOR DYSFUNCTION [None]
  - PARKINSON'S DISEASE [None]
  - TREMOR [None]
